FAERS Safety Report 6336880-2 (Version None)
Quarter: 2009Q3

REPORT INFORMATION
  Report Type: 
  Country: None (occurrence: None)
  Receive Date: 20090901
  Receipt Date: 20090821
  Transmission Date: 20100115
  Serious: Yes (Hospitalization)
  Sender: FDA-Public Use
  Company Number: PHHY2009NO35821

PATIENT
  Age: 37 Year
  Sex: Male

DRUGS (12)
  1. CERTICAN [Suspect]
     Indication: RENAL TRANSPLANT
  2. TACROLIMUS [Suspect]
     Indication: RENAL TRANSPLANT
     Dosage: UNK
  3. RAPAMUNE [Suspect]
     Indication: RENAL TRANSPLANT
     Dosage: UNK
     Dates: start: 20051001
  4. PREDNISOLONE [Concomitant]
     Indication: RENAL TRANSPLANT
     Dosage: 7.5 MG
     Dates: start: 20051001
  5. MYCOPHENOLATE MOFETIL [Concomitant]
     Dosage: 500 MG, BID
     Dates: start: 20051001
  6. BASILIXIMAB [Concomitant]
     Indication: RENAL TRANSPLANT
     Dosage: UNK
     Route: 042
     Dates: start: 20051001
  7. BASILIXIMAB [Concomitant]
     Dosage: UNK
     Dates: start: 20080101
  8. BASILIXIMAB [Concomitant]
     Dosage: 20 MG
     Route: 042
     Dates: start: 20080101
  9. BELATACEPT [Concomitant]
     Indication: RENAL TRANSPLANT
     Dosage: 10 MG/KG
     Dates: start: 20080101
  10. BELATACEPT [Concomitant]
     Dosage: 10 MG/KG
  11. BELATACEPT [Concomitant]
     Dosage: 10 MG/KG
  12. BELATACEPT [Concomitant]
     Dosage: 5 MG/KG EVERY FOUR WEEK
     Route: 042

REACTIONS (10)
  - ARTHRALGIA [None]
  - DISEASE RECURRENCE [None]
  - DRUG INTOLERANCE [None]
  - HAEMODIALYSIS [None]
  - HAEMOLYTIC URAEMIC SYNDROME [None]
  - KIDNEY FIBROSIS [None]
  - RENAL GRAFT LOSS [None]
  - RENAL TRANSPLANT [None]
  - RENAL TUBULAR ATROPHY [None]
  - SKIN BURNING SENSATION [None]
